FAERS Safety Report 6574185-5 (Version None)
Quarter: 2010Q1

REPORT INFORMATION
  Report Type: 
  Country: None (occurrence: None)
  Receive Date: 20100208
  Receipt Date: 20100107
  Transmission Date: 20100710
  Serious: No
  Sender: FDA-Public Use
  Company Number: US-BAYER-201011155NA

PATIENT
  Age: 30 Year
  Sex: Female
  Weight: 59 kg

DRUGS (1)
  1. ULTRAVIST 370 [Suspect]
     Indication: DEEP VEIN THROMBOSIS
     Dosage: TOTAL DAILY DOSE: 100 ML  UNIT DOSE: 500 ML
     Route: 042
     Dates: start: 20100106, end: 20100106

REACTIONS (3)
  - ERYTHEMA [None]
  - PALMAR ERYTHEMA [None]
  - PRURITUS [None]
